FAERS Safety Report 8521391-6 (Version None)
Quarter: 2012Q3

REPORT INFORMATION
  Report Type: 
  Country: None (occurrence: None)
  Receive Date: 20120719
  Receipt Date: 20110624
  Transmission Date: 20120928
  Serious: No
  Sender: FDA-Public Use
  Company Number: US-BRISTOL-MYERS SQUIBB COMPANY-15854607

PATIENT
  Age: 59 Year
  Sex: Male

DRUGS (3)
  1. SPRYCEL [Suspect]
     Dates: start: 20110601
  2. ACIDOPHILUS [Concomitant]
  3. ASPIRIN [Concomitant]

REACTIONS (3)
  - PAIN [None]
  - FATIGUE [None]
  - HEADACHE [None]
